FAERS Safety Report 17962477 (Version 1)
Quarter: 2020Q2

REPORT INFORMATION
  Report Type: Spontaneous
  Country: US (occurrence: US)
  Receive Date: 20200629
  Receipt Date: 20200629
  Transmission Date: 20200714
  Serious: No
  Sender: FDA-Public Use
  Company Number: None

PATIENT
  Age: 44 Year
  Sex: Female
  Weight: 85.5 kg

DRUGS (12)
  1. FLUCONAZOLE. [Suspect]
     Active Substance: FLUCONAZOLE
     Indication: VULVOVAGINAL MYCOTIC INFECTION
     Dosage: ?          QUANTITY:1 TABLET(S);?
     Route: 048
     Dates: start: 20200628, end: 20200628
  2. VITAMIN B12 [Concomitant]
     Active Substance: CYANOCOBALAMIN
  3. TURMERIC [Concomitant]
     Active Substance: HERBALS\TURMERIC
  4. GABAPENTIN. [Concomitant]
     Active Substance: GABAPENTIN
  5. MUSHROOM [Concomitant]
     Active Substance: CULTIVATED MUSHROOM
  6. VITAMIN D [Concomitant]
     Active Substance: VITAMIN D NOS
  7. NAPROXEN. [Concomitant]
     Active Substance: NAPROXEN
  8. CIPRO [Concomitant]
     Active Substance: CIPROFLOXACIN HYDROCHLORIDE
  9. ATARAZ [Concomitant]
  10. PREDNISONE. [Concomitant]
     Active Substance: PREDNISONE
  11. MAGNESIUM [Concomitant]
     Active Substance: MAGNESIUM
  12. VITAMIN C [Concomitant]
     Active Substance: ASCORBIC ACID

REACTIONS (10)
  - Rash [None]
  - Rash pruritic [None]
  - Rash papular [None]
  - Lip swelling [None]
  - Lip pain [None]
  - Fatigue [None]
  - Documented hypersensitivity to administered product [None]
  - Urticaria [None]
  - Neuralgia [None]
  - Drug hypersensitivity [None]

NARRATIVE: CASE EVENT DATE: 20200628
